FAERS Safety Report 5537074-0 (Version None)
Quarter: 2007Q4

REPORT INFORMATION
  Report Type: 
  Country: None (occurrence: None)
  Receive Date: 20071207
  Receipt Date: 20071203
  Transmission Date: 20080405
  Serious: Yes (Hospitalization)
  Sender: FDA-Public Use
  Company Number: JP-BRISTOL-MYERS SQUIBB COMPANY-14004360

PATIENT
  Age: 57 Year
  Sex: Female

DRUGS (7)
  1. TAXOL [Suspect]
     Indication: UTERINE CANCER
     Dosage: RESTARTED ON 25OC07-25OCT-2007, 210MG.
     Route: 041
     Dates: start: 20070606, end: 20070820
  2. PARAPLATIN [Suspect]
     Indication: UTERINE CANCER
     Dosage: RESTARTED 330MG 1/1/MONTH, 25OCT07-25OCT07.
     Route: 041
     Dates: start: 20070606, end: 20070820
  3. NEUTROGIN [Concomitant]
     Route: 058
     Dates: start: 20070718, end: 20071107
  4. KYTRIL [Concomitant]
     Route: 041
     Dates: start: 20070606, end: 20071025
  5. DEXAMETHASONE SODIUM PHOSPHATE [Concomitant]
     Indication: PREMEDICATION
     Dates: start: 20070606, end: 20071025
  6. DIPHENHYDRAMINE HCL [Concomitant]
     Indication: PREMEDICATION
     Dates: start: 20070606, end: 20071025
  7. RANITIDINE HCL [Concomitant]
     Indication: PREMEDICATION
     Route: 042
     Dates: start: 20070606, end: 20071025

REACTIONS (5)
  - ALTERED STATE OF CONSCIOUSNESS [None]
  - DEHYDRATION [None]
  - PYELONEPHRITIS [None]
  - RENAL IMPAIRMENT [None]
  - WHITE BLOOD CELL COUNT DECREASED [None]
